FAERS Safety Report 14535189 (Version 1)
Quarter: 2018Q1

REPORT INFORMATION
  Report Type: Spontaneous
  Country: US (occurrence: US)
  Receive Date: 20180214
  Receipt Date: 20180214
  Transmission Date: 20180509
  Serious: No
  Sender: FDA-Public Use
  Company Number: None

PATIENT
  Age: 59 Year
  Sex: Female
  Weight: 77.85 kg

DRUGS (4)
  1. MESALAMINE DR 1.2 GM TABLET [Suspect]
     Active Substance: MESALAMINE
     Indication: COLITIS
     Dosage: ?          QUANTITY:2 TABLET(S);?
     Route: 048
  2. TYLENOL [Concomitant]
     Active Substance: ACETAMINOPHEN
  3. PROBIOTICS [Concomitant]
     Active Substance: PROBIOTICS NOS
  4. MULTI-VITAMIN [Concomitant]
     Active Substance: .ALPHA.-TOCOPHEROL ACETATE, DL-\ASCORBIC ACID\CYANOCOBALAMIN\FLUORIDE ION\FOLIC ACID\NIACIN\PYRIDOXINE\RIBOFLAVIN\THIAMINE\VITAMIN A\VITAMIN D

REACTIONS (5)
  - Abdominal discomfort [None]
  - Haematochezia [None]
  - Gastrooesophageal reflux disease [None]
  - Frustration tolerance decreased [None]
  - Product substitution issue [None]

NARRATIVE: CASE EVENT DATE: 20180214
